FAERS Safety Report 18920113 (Version 3)
Quarter: 2021Q1

REPORT INFORMATION
  Report Type: Spontaneous
  Country: US (occurrence: US)
  Receive Date: 20210222
  Receipt Date: 20210310
  Transmission Date: 20210420
  Serious: No
  Sender: FDA-Public Use
  Company Number: US-TEVA-2021-US-1881332

PATIENT
  Sex: Female

DRUGS (2)
  1. ADVAIR HFA [Concomitant]
     Active Substance: FLUTICASONE PROPIONATE\SALMETEROL XINAFOATE
  2. PROAIR HFA [Suspect]
     Active Substance: ALBUTEROL SULFATE
     Indication: ASTHMA
     Route: 055
     Dates: start: 20210208

REACTIONS (15)
  - Paraesthesia [Unknown]
  - Lacrimation increased [Unknown]
  - Peripheral swelling [Unknown]
  - Dysgeusia [Unknown]
  - Hyperhidrosis [Unknown]
  - Dizziness [Unknown]
  - Drug ineffective [Unknown]
  - Pallor [Unknown]
  - Secretion discharge [Unknown]
  - Dyspnoea [Unknown]
  - Oropharyngeal discomfort [Unknown]
  - Product taste abnormal [Unknown]
  - Rhinorrhoea [Unknown]
  - Musculoskeletal stiffness [Unknown]
  - Product quality issue [Unknown]

NARRATIVE: CASE EVENT DATE: 202102
